FAERS Safety Report 20430697 (Version 1)
Quarter: 2022Q1

REPORT INFORMATION
  Report Type: Report from Study
  Country: FR (occurrence: FR)
  Receive Date: 20220204
  Receipt Date: 20220204
  Transmission Date: 20220423
  Serious: Yes (Hospitalization, Other)
  Sender: FDA-Public Use
  Company Number: FR-SERVIER-S21001682

PATIENT

DRUGS (5)
  1. PEGASPARGASE [Suspect]
     Active Substance: PEGASPARGASE
     Indication: Acute lymphocytic leukaemia
     Dosage: 1163 IU, QD, D4
     Route: 042
     Dates: start: 20200829, end: 20200829
  2. VINCRISTINE [Suspect]
     Active Substance: VINCRISTINE
     Indication: Acute lymphocytic leukaemia
     Dosage: 1.4 MG, QD, D1, D8, D15, D22
     Route: 042
     Dates: start: 20200826
  3. DAUNORUBICIN [Suspect]
     Active Substance: DAUNORUBICIN
     Indication: Acute lymphocytic leukaemia
     Dosage: 28 MG, QD, D1, D8, D15, D22
     Route: 042
     Dates: start: 20200826
  4. METHOTREXATE [Suspect]
     Active Substance: METHOTREXATE
     Indication: Acute lymphocytic leukaemia
     Dosage: 15 MG, QD, D4
     Route: 037
     Dates: start: 20200829, end: 20200829
  5. DEXAMETHASONE [Suspect]
     Active Substance: DEXAMETHASONE
     Indication: Acute lymphocytic leukaemia
     Dosage: 9 MG, QD, D1 TO D21
     Route: 048
     Dates: start: 20200826, end: 20200915

REACTIONS (4)
  - Hyponatraemia [Recovered/Resolved]
  - Hypophagia [Recovered/Resolved]
  - Hypertriglyceridaemia [Recovered/Resolved]
  - Coagulopathy [Recovered/Resolved]

NARRATIVE: CASE EVENT DATE: 20200916
